FAERS Safety Report 6467260-7 (Version None)
Quarter: 2009Q4

REPORT INFORMATION
  Report Type: 
  Country: None (occurrence: None)
  Receive Date: 20091202
  Receipt Date: 20091119
  Transmission Date: 20100525
  Serious: Yes (Hospitalization)
  Sender: FDA-Public Use
  Company Number: FR-BRISTOL-MYERS SQUIBB COMPANY-14876312

PATIENT
  Age: 69 Year
  Sex: Female

DRUGS (7)
  1. GLUCOPHAGE [Suspect]
     Indication: TYPE 2 DIABETES MELLITUS
     Route: 048
     Dates: start: 20010101, end: 20090101
  2. KARDEGIC [Suspect]
     Indication: PROPHYLAXIS
     Dates: start: 20070301, end: 20090101
  3. TRIVASTAL [Concomitant]
     Indication: PARKINSON'S DISEASE
     Route: 048
     Dates: start: 20080201, end: 20090101
  4. SINEMET [Concomitant]
     Indication: PARKINSON'S DISEASE
     Route: 048
     Dates: start: 20080201, end: 20090101
  5. MOTILYO [Concomitant]
     Indication: VOMITING
     Route: 048
     Dates: start: 20090101
  6. LEVOTHYROXINE SODIUM [Concomitant]
     Indication: HYPOTHYROIDISM
     Dates: end: 20070301
  7. HYDROCORTISONE [Concomitant]
     Indication: ADRENOCORTICAL INSUFFICIENCY ACUTE
     Route: 048
     Dates: start: 20070301

REACTIONS (1)
  - SUBDURAL HAEMATOMA [None]
